FAERS Safety Report 5995287-8 (Version None)
Quarter: 2008Q4

REPORT INFORMATION
  Report Type: 
  Country: None (occurrence: None)
  Receive Date: 20081212
  Receipt Date: 20080922
  Transmission Date: 20090506
  Serious: No
  Sender: FDA-Public Use
  Company Number: US-ABBOTT-08P-163-0478282-00

PATIENT
  Sex: Female
  Weight: 77.18 kg

DRUGS (8)
  1. HUMIRA [Suspect]
     Indication: RHEUMATOID ARTHRITIS
     Route: 058
     Dates: start: 20071001, end: 20080101
  2. HUMIRA [Suspect]
     Route: 058
     Dates: start: 20080301, end: 20080701
  3. HUMIRA [Suspect]
     Route: 058
     Dates: start: 20080701
  4. METHOTREXATE [Concomitant]
     Indication: RHEUMATOID ARTHRITIS
     Dosage: 2.5MG, 5 TAB Q WK
     Route: 048
     Dates: start: 20070101
  5. FOLIC ACID [Concomitant]
     Indication: VITAMIN SUPPLEMENTATION
     Route: 048
     Dates: start: 20071001
  6. PINDOLOL [Concomitant]
     Indication: HYPERTENSION
     Route: 048
     Dates: start: 19880101
  7. NAPROXEN SODIUM [Concomitant]
     Indication: RHEUMATOID ARTHRITIS
     Route: 048
     Dates: start: 20070101
  8. HYDROCODONE BITARTRATE [Concomitant]
     Indication: RHEUMATOID ARTHRITIS
     Dosage: 7.5/500 MG UP TO 3 AS NEED
     Route: 048
     Dates: start: 20070101

REACTIONS (8)
  - BRONCHITIS [None]
  - DRUG DOSE OMISSION [None]
  - ECZEMA [None]
  - MOBILITY DECREASED [None]
  - MUSCULOSKELETAL STIFFNESS [None]
  - PAIN [None]
  - PNEUMONIA [None]
  - RASH [None]
